FAERS Safety Report 8961404 (Version 3)
Quarter: 2013Q1

REPORT INFORMATION
  Report Type: Report from Study
  Country: US (occurrence: US)
  Receive Date: 20121212
  Receipt Date: 20130122
  Transmission Date: 20140127
  Serious: Yes (Hospitalization, Other)
  Sender: FDA-Public Use
  Company Number: US-ELI_LILLY_AND_COMPANY-US201212000373

PATIENT
  Age: 55 Year
  Sex: Male

DRUGS (6)
  1. OLANZAPINE LONG-ACTING IM [Suspect]
     Indication: SCHIZOPHRENIA
     Dosage: 30 MG, 2/M
     Route: 030
     Dates: start: 20121129
  2. OLANZAPINE [Concomitant]
     Route: 048
  3. LEVOTHYROXINE [Concomitant]
     Dosage: 25 UG, QD
     Route: 048
  4. ASPIRIN [Concomitant]
     Dosage: 81 MG, QD
  5. DIVALPROEX [Concomitant]
     Indication: MOOD ALTERED
     Dosage: 500 MG, BID
  6. HALDOL [Concomitant]

REACTIONS (7)
  - Sedation [Recovered/Resolved]
  - Delirium [Recovered/Resolved]
  - Sensory level normal [Recovered/Resolved]
  - Depressed level of consciousness [Recovered/Resolved]
  - Bradycardia [Recovered/Resolved]
  - Pupillary reflex impaired [Recovered/Resolved]
  - Hypotension [Recovered/Resolved]
